FAERS Safety Report 5380861-2 (Version None)
Quarter: 2007Q3

REPORT INFORMATION
  Report Type: 
  Country: None (occurrence: None)
  Receive Date: 20070706
  Receipt Date: 20070628
  Transmission Date: 20080115
  Serious: Yes (Hospitalization)
  Sender: FDA-Public Use
  Company Number: US-JNJFOC-20070700240

PATIENT
  Sex: Female
  Weight: 79.38 kg

DRUGS (4)
  1. DURAGESIC-100 [Suspect]
     Indication: PAIN
     Route: 062
  2. PHENERGAN HCL [Concomitant]
     Indication: NAUSEA
     Route: 048
  3. ESTROTEST [Concomitant]
     Indication: HORMONE REPLACEMENT THERAPY
     Route: 048
  4. POTASSIUM ACETATE [Concomitant]
     Route: 048

REACTIONS (5)
  - DIARRHOEA [None]
  - ENDOMETRIOSIS [None]
  - MUSCLE SPASMS [None]
  - NAUSEA [None]
  - PANCREATITIS [None]
